FAERS Safety Report 15100443 (Version 2)
Quarter: 2018Q3

REPORT INFORMATION
  Report Type: Report from Study
  Country: IT (occurrence: IT)
  Receive Date: 20180703
  Receipt Date: 20180816
  Transmission Date: 20181010
  Serious: Yes (Other)
  Sender: FDA-Public Use
  Company Number: IT-TEVA-2018-IT-919538

PATIENT
  Age: 63 Year
  Sex: Male

DRUGS (5)
  1. NOVORAPID FLEXPEN 100 UNITS/ML SOLUTION FOR INJECTION IN PRE?FILLED PE [Concomitant]
     Indication: DIABETES MELLITUS
     Route: 058
     Dates: start: 20100101
  2. TELMISARTAN. [Suspect]
     Active Substance: TELMISARTAN
     Indication: HYPERTENSION
     Dosage: 1 DOSAGE FORMS DAILY;
     Route: 048
     Dates: start: 20180405, end: 20180414
  3. ABASAGLAR 100 UNITS/ML SOLUTION FOR INJECTION IN A PRE?FILLED PEN [Concomitant]
     Active Substance: INSULIN GLARGINE
     Indication: DIABETES MELLITUS
     Route: 058
     Dates: start: 20180420
  4. METOPROLOLO DOC GENERICI 100 MG COMPRESSE [Concomitant]
     Indication: HYPERTENSION
     Route: 048
     Dates: start: 20100101
  5. TORVAST 20 MG COMPRESSE MASTICABILI [Concomitant]
     Indication: HYPERCHOLESTEROLAEMIA
     Route: 048
     Dates: start: 20100101

REACTIONS (1)
  - Lip oedema [Recovered/Resolved]

NARRATIVE: CASE EVENT DATE: 20180414
